FAERS Safety Report 5121954-4 (Version None)
Quarter: 2006Q4

REPORT INFORMATION
  Report Type: 
  Country: None (occurrence: None)
  Receive Date: 20061006
  Receipt Date: 20060929
  Transmission Date: 20070319
  Serious: Yes (Other)
  Sender: FDA-Public Use
  Company Number: US-KINGPHARMUSA00001-K200601241

PATIENT
  Age: 64 Year
  Sex: Female
  Weight: 104 kg

DRUGS (3)
  1. ALTACE [Suspect]
     Indication: HYPERTENSION
     Dosage: 5 MG, QD
     Route: 048
     Dates: start: 19980101, end: 20010101
  2. ALTACE [Suspect]
     Dosage: 2.5 MG, QD
     Route: 048
     Dates: start: 20010101
  3. POTASSIUM [Concomitant]
     Dosage: UNK, PRN
     Route: 048

REACTIONS (3)
  - HEPATIC ATROPHY [None]
  - HEPATOMEGALY [None]
  - SPLENOMEGALY [None]
